FAERS Safety Report 6349326-5 (Version None)
Quarter: 2009Q3

REPORT INFORMATION
  Report Type: 
  Country: None (occurrence: None)
  Receive Date: 20090911
  Receipt Date: 20090902
  Transmission Date: 20100115
  Serious: Yes (Other)
  Sender: FDA-Public Use
  Company Number: B0592536A

PATIENT
  Age: 61 Year
  Sex: Female

DRUGS (2)
  1. DILATREND [Suspect]
     Route: 048
     Dates: start: 20090820, end: 20090801
  2. INSULIN [Concomitant]

REACTIONS (1)
  - DERMATITIS ALLERGIC [None]
